FAERS Safety Report 23225881 (Version 1)
Quarter: 2023Q4

REPORT INFORMATION
  Report Type: Other
  Country: None (occurrence: TR)
  Receive Date: 20231124
  Receipt Date: 20231124
  Transmission Date: 20240109
  Serious: Yes (Life-Threatening)
  Sender: FDA-Public Use
  Company Number: TR-B.Braun Medical Inc.-2148667

PATIENT
  Age: 16 Year
  Sex: Male

DRUGS (4)
  1. SODIUM CHLORIDE [Suspect]
     Active Substance: SODIUM CHLORIDE
     Indication: Anaphylactic reaction
  2. EPINEPHRINE [Suspect]
     Active Substance: EPINEPHRINE
  3. METHYLPREDNISOLONE [Suspect]
     Active Substance: METHYLPREDNISOLONE
  4. ALBUTEROL [Suspect]
     Active Substance: ALBUTEROL

REACTIONS (1)
  - Drug ineffective [None]
